FAERS Safety Report 4660947-8 (Version None)
Quarter: 2005Q2

REPORT INFORMATION
  Report Type: 
  Country: None (occurrence: None)
  Receive Date: 20050511
  Receipt Date: 20050427
  Transmission Date: 20051028
  Serious: Yes (Hospitalization, Other)
  Sender: FDA-Public Use
  Company Number: 200511248GDS

PATIENT
  Age: 63 Year
  Sex: Male

DRUGS (6)
  1. NIFEDIPINE [Suspect]
     Indication: HYPERTENSION
     Dosage: 60 MG, TOTAL DAILY, ORAL
     Route: 048
     Dates: start: 20010101
  2. NIFEDIPINE [Suspect]
     Indication: HYPERTENSION
     Dosage: 60 MG, BIW, ORAL
     Route: 048
  3. BEXTRA [Suspect]
     Indication: OSTEOARTHRITIS
     Dosage: 30 MG, TOTAL DAILY
     Dates: start: 20030101, end: 20030407
  4. CELEBREX [Suspect]
     Indication: PAIN
     Dosage: ORAL
     Route: 048
     Dates: start: 20030423, end: 20030101
  5. LIPITOR [Suspect]
     Indication: BLOOD CHOLESTEROL INCREASED
     Dosage: 19 MG, TOTAL DAILY, ORAL
     Route: 048
     Dates: start: 20010101
  6. ROFECOXIB [Suspect]
     Indication: PAIN
     Dates: start: 20030101

REACTIONS (12)
  - DRUG INEFFECTIVE [None]
  - DYSPEPSIA [None]
  - FLATULENCE [None]
  - GASTRIC DISORDER [None]
  - GASTROINTESTINAL DISORDER [None]
  - KNEE ARTHROPLASTY [None]
  - MENISCUS LESION [None]
  - OSTEOARTHRITIS [None]
  - PAIN [None]
  - RETCHING [None]
  - STOMACH DISCOMFORT [None]
  - TREATMENT NONCOMPLIANCE [None]
